FAERS Safety Report 8687460 (Version 5)
Quarter: 2012Q4

REPORT INFORMATION
  Report Type: 
  Country: US (occurrence: US)
  Receive Date: 20120727
  Receipt Date: 20121018
  Transmission Date: 20130627
  Serious: Yes (Hospitalization, Other)
  Sender: FDA-Public Use
  Company Number: PHEH2012US014466

PATIENT
  Age: 56 Year
  Sex: Female
  Weight: 65.76 kg

DRUGS (3)
  1. GILENYA [Suspect]
     Indication: MULTIPLE SCLEROSIS
     Dosage: 0.5 mg, QD
     Route: 048
     Dates: start: 201106, end: 20120718
  2. PRINZIDE [Concomitant]
     Indication: HYPERTENSION
     Dosage: 10-12.5 mg tablet daily
     Route: 048
  3. PREMPRO [Concomitant]
     Dosage: 0.45-1.5 mg daily
     Route: 048

REACTIONS (11)
  - Pericarditis [Recovering/Resolving]
  - Chest pain [Recovering/Resolving]
  - Atrioventricular block first degree [Recovering/Resolving]
  - Oedema peripheral [Recovering/Resolving]
  - Pericardial calcification [Recovering/Resolving]
  - Arteriosclerosis coronary artery [Recovering/Resolving]
  - Fatigue [Recovering/Resolving]
  - Blood thyroid stimulating hormone increased [Recovering/Resolving]
  - Headache [Recovering/Resolving]
  - Lymphocyte count decreased [Recovering/Resolving]
  - White blood cell count decreased [Recovering/Resolving]
